FAERS Safety Report 26075464 (Version 1)
Quarter: 2025Q4

REPORT INFORMATION
  Report Type: Spontaneous
  Country: US (occurrence: US)
  Receive Date: 20251121
  Receipt Date: 20251121
  Transmission Date: 20260118
  Serious: No
  Sender: VERASTEM
  Company Number: US-VERASTEM-251111US-AFCPK-00830

PATIENT

DRUGS (1)
  1. AVMAPKI FAKZYNJA CO-PACK [Suspect]
     Active Substance: AVUTOMETINIB POTASSIUM\DEFACTINIB HYDROCHLORIDE
     Indication: Product used for unknown indication

REACTIONS (5)
  - Gastrooesophageal reflux disease [Unknown]
  - Rash [Unknown]
  - Vulvovaginal pruritus [Unknown]
  - Vulvovaginal mycotic infection [Unknown]
  - Drug intolerance [Unknown]
